FAERS Safety Report 4452956-9 (Version None)
Quarter: 2004Q3

REPORT INFORMATION
  Report Type: 
  Country: None (occurrence: None)
  Receive Date: 20040916
  Receipt Date: 20040902
  Transmission Date: 20050211
  Serious: Yes (Hospitalization)
  Sender: FDA-Public Use
  Company Number: 04P-163-0272420-00

PATIENT
  Age: 40 Year
  Sex: Male

DRUGS (4)
  1. KALETRA [Suspect]
     Dosage: 25 CC,  2 IN 1 D
  2. STAVUDINE [Concomitant]
  3. VINDEAD [Concomitant]
  4. LAMIVUDINE [Concomitant]

REACTIONS (3)
  - INFECTION [None]
  - LOSS OF CONSCIOUSNESS [None]
  - OVERDOSE [None]
